FAERS Safety Report 7737788-8 (Version None)
Quarter: 2011Q3

REPORT INFORMATION
  Report Type: 
  Country: None (occurrence: None)
  Receive Date: 20110908
  Receipt Date: 20110825
  Transmission Date: 20111222
  Serious: Yes (Hospitalization, Other)
  Sender: FDA-Public Use
  Company Number: PHHY2011CN76286

PATIENT
  Sex: Male
  Weight: 52 kg

DRUGS (3)
  1. GLEEVEC [Suspect]
     Dosage: 300 MG, QD
     Route: 048
     Dates: end: 20110606
  2. GLEEVEC [Suspect]
     Indication: CHRONIC MYELOID LEUKAEMIA
     Dosage: 400 MG, QD
     Route: 048
     Dates: start: 20100728, end: 20100822
  3. GLEEVEC [Suspect]
     Dosage: 300 MG, QD
     Route: 048
     Dates: start: 20100823

REACTIONS (9)
  - HAEMATOTOXICITY [None]
  - LEUKOPENIA [None]
  - PYREXIA [None]
  - RASH [None]
  - NEUTROPENIA [None]
  - UPPER RESPIRATORY TRACT CONGESTION [None]
  - THROMBOCYTOPENIA [None]
  - MOUTH ULCERATION [None]
  - HEADACHE [None]
